FAERS Safety Report 4668322-7 (Version None)
Quarter: 2005Q2

REPORT INFORMATION
  Report Type: 
  Country: None (occurrence: None)
  Receive Date: 20050523
  Receipt Date: 20050303
  Transmission Date: 20051028
  Serious: Yes (Other)
  Sender: FDA-Public Use
  Company Number: PHEH2005US03022

PATIENT
  Age: 85 Year
  Sex: Female

DRUGS (1)
  1. ZOMETA [Suspect]
     Indication: HEPATIC NEOPLASM MALIGNANT
     Dosage: 4 MG, QMO
     Dates: start: 20031229, end: 20050203

REACTIONS (6)
  - BONE DEBRIDEMENT [None]
  - BONE DISORDER [None]
  - JAW DISORDER [None]
  - LOCAL ANAESTHESIA [None]
  - OSTEONECROSIS [None]
  - TOOTH EXTRACTION [None]
